FAERS Safety Report 5620915-6 (Version None)
Quarter: 2008Q1

REPORT INFORMATION
  Report Type: 
  Country: None (occurrence: None)
  Receive Date: 20080208
  Receipt Date: 20080128
  Transmission Date: 20080703
  Serious: Yes (Hospitalization)
  Sender: FDA-Public Use
  Company Number: ES-PFIZER INC-2008008137

PATIENT
  Age: 65 Year
  Sex: Male

DRUGS (9)
  1. ZYVOXID SUSPENSION, ORAL [Suspect]
     Indication: SEPTIC SHOCK
     Dosage: DAILY DOSE:1200MG
     Dates: start: 20070912, end: 20070920
  2. IPRATROPIUM BROMIDE [Concomitant]
     Route: 055
  3. MIDAZOLAM HCL [Concomitant]
     Route: 042
     Dates: start: 20070918, end: 20070920
  4. ALBUTEROL [Concomitant]
     Route: 055
  5. EPOPROSTENOL SODIUM [Concomitant]
     Route: 042
     Dates: start: 20070915, end: 20070916
  6. ENOXAPARIN SODIUM [Concomitant]
     Route: 058
     Dates: start: 20070915, end: 20070922
  7. TAZOBACTAM SODIUM [Concomitant]
     Route: 042
     Dates: start: 20070915, end: 20070925
  8. PIPERACILLIN SODIUM [Concomitant]
     Route: 042
     Dates: start: 20070915, end: 20070925
  9. FITOMENADION [Concomitant]
     Route: 042
     Dates: start: 20070915, end: 20070918

REACTIONS (2)
  - HAEMOPTYSIS [None]
  - THROMBOCYTOPENIA [None]
